FAERS Safety Report 8790134 (Version 1)
Quarter: 2012Q4

REPORT INFORMATION
  Report Type: 
  Country: US (occurrence: US)
  Receive Date: 20120917
  Receipt Date: 20120917
  Transmission Date: 20130627
  Serious: Yes (Hospitalization)
  Sender: FDA-Public Use
  Company Number: US-SANOFI-AVENTIS-2012SA063611

PATIENT
  Age: 57 Year
  Sex: Male

DRUGS (3)
  1. ACETYLSALICYLIC ACID [Suspect]
     Indication: DRUG USE FOR UNKNOWN INDICATION
     Route: 065
  2. PARACETAMOL [Suspect]
     Indication: DRUG USE FOR UNKNOWN INDICATION
     Route: 065
  3. GLIBENCLAMIDE [Suspect]
     Indication: DRUG USE FOR UNKNOWN INDICATION
     Route: 065

REACTIONS (10)
  - International normalised ratio increased [Unknown]
  - Drug level increased [Unknown]
  - Overdose [Unknown]
  - Hypoglycaemia [Recovered/Resolved]
  - Insulin C-peptide increased [Recovered/Resolved]
  - Blood insulin increased [Recovered/Resolved]
  - Unresponsive to stimuli [Unknown]
  - Coma scale abnormal [Unknown]
  - Blood bicarbonate decreased [Unknown]
  - Aspartate aminotransferase increased [Recovered/Resolved]
